FAERS Safety Report 25092856 (Version 2)
Quarter: 2025Q2

REPORT INFORMATION
  Report Type: Spontaneous
  Country: US (occurrence: US)
  Receive Date: 20250319
  Receipt Date: 20250401
  Transmission Date: 20250717
  Serious: Yes (Hospitalization, Other)
  Sender: TAKEDA
  Company Number: US-TAKEDA-2025TUS026522

PATIENT
  Age: 76 Year
  Sex: Female

DRUGS (14)
  1. COLCHICINE [Suspect]
     Active Substance: COLCHICINE
     Indication: Gout
  2. EMPAGLIFLOZIN [Concomitant]
     Active Substance: EMPAGLIFLOZIN
  3. EMPAGLIFLOZIN [Concomitant]
     Active Substance: EMPAGLIFLOZIN
  4. METFORMIN [Concomitant]
     Active Substance: METFORMIN HYDROCHLORIDE
  5. GLIPIZIDE [Concomitant]
     Active Substance: GLIPIZIDE
  6. LISINOPRIL [Concomitant]
     Active Substance: LISINOPRIL
  7. HYDROCHLOROTHIAZIDE [Concomitant]
     Active Substance: HYDROCHLOROTHIAZIDE
  8. AMLODIPINE [Concomitant]
     Active Substance: AMLODIPINE BESYLATE
  9. ATORVASTATIN [Concomitant]
     Active Substance: ATORVASTATIN
  10. ALLOPURINOL [Concomitant]
     Active Substance: ALLOPURINOL
  11. ALENDRONATE [Concomitant]
     Active Substance: ALENDRONATE SODIUM
  12. VITAMIN D [Concomitant]
     Active Substance: VITAMIN D NOS
  13. CALCIUM [Concomitant]
     Active Substance: CALCIUM
  14. PROPRANOLOL [Concomitant]
     Active Substance: PROPRANOLOL HYDROCHLORIDE

REACTIONS (14)
  - Myelosuppression [Unknown]
  - Myopathy [Unknown]
  - Acute kidney injury [Unknown]
  - Hypercalcaemia [Unknown]
  - Sinus bradycardia [Unknown]
  - Hypovolaemia [Unknown]
  - Hypoperfusion [Unknown]
  - Hypoplastic anaemia [Unknown]
  - Bone marrow failure [Unknown]
  - Asthenia [Not Recovered/Not Resolved]
  - Thrombocytopenia [Unknown]
  - Fatigue [Unknown]
  - Diarrhoea [Recovered/Resolved]
  - Nausea [Unknown]
